FAERS Safety Report 9166069 (Version 1)
Quarter: 2013Q1

REPORT INFORMATION
  Report Type: Spontaneous
  Country: AU (occurrence: AU)
  Receive Date: 20130315
  Receipt Date: 20130315
  Transmission Date: 20140127
  Serious: Yes (Hospitalization)
  Sender: FDA-Public Use
  Company Number: PHHY2013AU024897

PATIENT
  Age: 0 Year
  Sex: Male
  Weight: 8.5 kg

DRUGS (3)
  1. OMEPRAZOLE [Suspect]
     Dosage: 20 MG, DAILY
     Route: 048
     Dates: start: 20120924
  2. DOMPERIDONE [Suspect]
     Dosage: 3 MG, DAILY
     Route: 048
     Dates: start: 20120917
  3. ESOMEPRAZOLE [Suspect]
     Dosage: 40 MG, DAILY
     Route: 048
     Dates: start: 20120821, end: 20120924

REACTIONS (2)
  - Abnormal faeces [Recovered/Resolved]
  - Clostridial infection [Recovered/Resolved]
